FAERS Safety Report 5703925-X (Version None)
Quarter: 2008Q2

REPORT INFORMATION
  Report Type: 
  Country: None (occurrence: None)
  Receive Date: 20080409
  Receipt Date: 20080402
  Transmission Date: 20081010
  Serious: Yes (Death)
  Sender: FDA-Public Use
  Company Number: 2008US000169

PATIENT
  Age: 29 Year
  Sex: Male

DRUGS (2)
  1. PROGRAF [Suspect]
     Indication: DRUG USE FOR UNKNOWN INDICATION
     Dates: start: 20060125
  2. LOPRESSOR [Concomitant]

REACTIONS (9)
  - BLOOD POTASSIUM INCREASED [None]
  - CARDIAC ARREST [None]
  - FALL [None]
  - HEAD INJURY [None]
  - HYPERGLYCAEMIA [None]
  - LOSS OF CONSCIOUSNESS [None]
  - MYOCARDIAL INFARCTION [None]
  - UNRESPONSIVE TO STIMULI [None]
  - VENTRICULAR FIBRILLATION [None]
